FAERS Safety Report 14550807 (Version 3)
Quarter: 2018Q1

REPORT INFORMATION
  Report Type: Report from Study
  Country: DE (occurrence: DE)
  Receive Date: 20180220
  Receipt Date: 20180312
  Transmission Date: 20180509
  Serious: Yes (Hospitalization, Other)
  Sender: FDA-Public Use
  Company Number: DE-BRISTOL-MYERS SQUIBB COMPANY-BMS-2017-032946

PATIENT
  Age: 75 Year
  Sex: Female
  Weight: 124 kg

DRUGS (1)
  1. APIXABAN [Suspect]
     Active Substance: APIXABAN
     Indication: EMBOLISM VENOUS
     Dosage: 10 MG, BID
     Route: 048
     Dates: start: 20160107, end: 20161009

REACTIONS (2)
  - Haemorrhage intracranial [Unknown]
  - Hypertension [Unknown]

NARRATIVE: CASE EVENT DATE: 20161009
